FAERS Safety Report 19433034 (Version 1)
Quarter: 2021Q2

REPORT INFORMATION
  Report Type: Spontaneous
  Country: US (occurrence: US)
  Receive Date: 20210617
  Receipt Date: 20210617
  Transmission Date: 20210717
  Serious: No
  Sender: FDA-Public Use
  Company Number: US-PFIZER INC-2021559220

PATIENT
  Age: 64 Year
  Sex: Female
  Weight: 81.18 kg

DRUGS (12)
  1. TRAZODONE HYDROCHLORIDE. [Concomitant]
     Active Substance: TRAZODONE HYDROCHLORIDE
     Dosage: 50 MG
  2. LETROZOLE. [Concomitant]
     Active Substance: LETROZOLE
     Dosage: 2.5 MG
  3. ZINC. [Concomitant]
     Active Substance: ZINC
     Dosage: 66 MG
  4. ONDANSETRON HCL [Concomitant]
     Active Substance: ONDANSETRON HYDROCHLORIDE
     Dosage: 8 MG
  5. ALEVE [Concomitant]
     Active Substance: NAPROXEN SODIUM
     Dosage: 220 MG
  6. VITAMIN D3 [Concomitant]
     Active Substance: CHOLECALCIFEROL
     Dosage: 10 UG
  7. MELOXICAM. [Concomitant]
     Active Substance: MELOXICAM
     Dosage: 15 MG
  8. IBRANCE [Suspect]
     Active Substance: PALBOCICLIB
     Indication: BREAST CANCER FEMALE
     Dosage: 100 MG, CYCLIC (DAILY FOR 21 DAYS)
     Dates: start: 20210414
  9. LORAZEPAM. [Concomitant]
     Active Substance: LORAZEPAM
     Dosage: 1 MG
  10. BENZONATATE. [Concomitant]
     Active Substance: BENZONATATE
     Dosage: 200 MG
  11. MAGNESIUM [Concomitant]
     Active Substance: MAGNESIUM
     Dosage: 250 MG
  12. ASPIRINE 325 MG [Concomitant]
     Active Substance: ASPIRIN
     Dosage: 325 MG

REACTIONS (8)
  - Blood count abnormal [Unknown]
  - Sciatica [Unknown]
  - Pain [Unknown]
  - Stomatitis [Unknown]
  - Hypoaesthesia [Unknown]
  - Insomnia [Unknown]
  - Abdominal discomfort [Unknown]
  - Nausea [Unknown]
